FAERS Safety Report 24109854 (Version 1)
Quarter: 2024Q3

REPORT INFORMATION
  Report Type: Spontaneous
  Country: LK (occurrence: LK)
  Receive Date: 20240718
  Receipt Date: 20240718
  Transmission Date: 20241016
  Serious: Yes (Other)
  Sender: INSUD PHARMA
  Company Number: LK-INSUD PHARMA-2407LK05558

PATIENT

DRUGS (3)
  1. OMEPRAZOLE [Suspect]
     Active Substance: OMEPRAZOLE
     Indication: Dyspepsia
     Dosage: UNKNOWN
     Route: 048
  2. CORIANDER OIL [Suspect]
     Active Substance: CORIANDER OIL
     Dosage: UNK
  3. GINGER [Suspect]
     Active Substance: GINGER
     Dosage: UNK

REACTIONS (5)
  - Insulin autoimmune syndrome [Recovered/Resolved]
  - Hyperhidrosis [Recovered/Resolved]
  - Hypoglycaemia [Recovered/Resolved]
  - Syncope [Recovered/Resolved]
  - Fall [Recovered/Resolved]
